FAERS Safety Report 6691574-9 (Version None)
Quarter: 2010Q2

REPORT INFORMATION
  Report Type: 
  Country: None (occurrence: None)
  Receive Date: 20100422
  Receipt Date: 20100413
  Transmission Date: 20101027
  Serious: Yes (Hospitalization)
  Sender: FDA-Public Use
  Company Number: US-ABBOTT-10P-163-0638171-00

PATIENT
  Sex: Female

DRUGS (2)
  1. HUMIRA [Suspect]
     Indication: MULTIPLE SCLEROSIS
  2. BACLOFEN [Concomitant]
     Indication: MULTIPLE SCLEROSIS

REACTIONS (1)
  - HEPATIC FAILURE [None]
